FAERS Safety Report 21715207 (Version 1)
Quarter: 2022Q4

REPORT INFORMATION
  Report Type: Spontaneous
  Country: US (occurrence: US)
  Receive Date: 20221212
  Receipt Date: 20221212
  Transmission Date: 20230112
  Serious: Yes (Other)
  Sender: FDA-Public Use
  Company Number: US-PFIZER INC-202201356517

PATIENT
  Age: 73 Year
  Sex: Male

DRUGS (1)
  1. PAXLOVID [Suspect]
     Active Substance: NIRMATRELVIR\RITONAVIR
     Indication: COVID-19 treatment
     Dosage: UNK

REACTIONS (10)
  - Hallucination [Unknown]
  - Dysphonia [Unknown]
  - Taste disorder [Unknown]
  - Diarrhoea [Unknown]
  - Myalgia [Unknown]
  - Gastric disorder [Unknown]
  - Nausea [Unknown]
  - Malaise [Unknown]
  - Hypertension [Unknown]
  - Abdominal pain [Unknown]
